FAERS Safety Report 20942254 (Version 1)
Quarter: 2022Q2

REPORT INFORMATION
  Report Type: Spontaneous
  Country: US (occurrence: US)
  Receive Date: 20220610
  Receipt Date: 20220610
  Transmission Date: 20220721
  Serious: Yes (Other)
  Sender: FDA-Public Use
  Company Number: US-NOVOPROD-925301

PATIENT
  Sex: Female

DRUGS (1)
  1. OZEMPIC [Suspect]
     Active Substance: SEMAGLUTIDE
     Indication: Product used for unknown indication
     Dosage: 0.25 MG
     Route: 058
     Dates: start: 20220528

REACTIONS (5)
  - Pruritus [Unknown]
  - Peripheral swelling [Unknown]
  - Pruritus [Not Recovered/Not Resolved]
  - Peripheral swelling [Unknown]
  - Hypersensitivity [Unknown]
